FAERS Safety Report 11058268 (Version 3)
Quarter: 2015Q2

REPORT INFORMATION
  Report Type: Spontaneous
  Country: AU (occurrence: AU)
  Receive Date: 20150423
  Receipt Date: 20150521
  Transmission Date: 20150821
  Serious: Yes (Life-Threatening)
  Sender: FDA-Public Use
  Company Number: AU-NOVOPROD-446158

PATIENT
  Age: 15 Year
  Sex: Male
  Weight: 48 kg

DRUGS (3)
  1. NORDITROPIN [Suspect]
     Active Substance: SOMATROPIN
     Indication: PRODUCT USED FOR UNKNOWN INDICATION
     Dosage: 1.67 MG, QD
     Route: 058
     Dates: start: 20060601, end: 20150305
  2. THYROXINE [Concomitant]
     Active Substance: LEVOTHYROXINE
     Dosage: 75 ?G, QD
     Route: 048
     Dates: start: 20060802
  3. HYDROCORTISONE. [Concomitant]
     Active Substance: HYDROCORTISONE
     Dosage: 12 MG, QD
     Route: 048
     Dates: start: 20071102

REACTIONS (1)
  - Brain stem glioma [Not Recovered/Not Resolved]

NARRATIVE: CASE EVENT DATE: 20150227
